FAERS Safety Report 16372841 (Version 3)
Quarter: 2019Q2

REPORT INFORMATION
  Report Type: Spontaneous
  Country: CN (occurrence: CN)
  Receive Date: 20190530
  Receipt Date: 20190530
  Transmission Date: 20190711
  Serious: Yes (Hospitalization, Other)
  Sender: FDA-Public Use
  Company Number: PHHY2019CN117699

PATIENT
  Age: 52 Year
  Sex: Female

DRUGS (1)
  1. DICLOFENAC [Suspect]
     Active Substance: DICLOFENAC
     Indication: SYNOVITIS
     Dosage: 1 DF, QD
     Route: 065
     Dates: start: 20171014

REACTIONS (12)
  - Arteriosclerosis coronary artery [Unknown]
  - Nephropathy toxic [Recovered/Resolved]
  - Drug interaction [Unknown]
  - Oliguria [Recovered/Resolved]
  - Oedema peripheral [Recovered/Resolved]
  - Pulmonary mass [Unknown]
  - Acute kidney injury [Recovered/Resolved]
  - Abdominal distension [Recovered/Resolved]
  - Nausea [Recovered/Resolved]
  - Back pain [Recovered/Resolved]
  - Arthralgia [Recovered/Resolved]
  - Cholelithiasis [Unknown]

NARRATIVE: CASE EVENT DATE: 20171015
